FAERS Safety Report 11689626 (Version 2)
Quarter: 2015Q4

REPORT INFORMATION
  Report Type: Spontaneous
  Country: LB (occurrence: LB)
  Receive Date: 20151102
  Receipt Date: 20151204
  Transmission Date: 20160304
  Serious: Yes (Death, Other)
  Sender: FDA-Public Use
  Company Number: LB-CELGENE-LBN-2015105170

PATIENT
  Age: 69 Year
  Sex: Male

DRUGS (2)
  1. AZACITIDINE. [Suspect]
     Active Substance: AZACITIDINE
     Indication: MYELODYSPLASTIC SYNDROME
     Dosage: 100 MILLIGRAM
     Route: 058
     Dates: start: 201107, end: 201309
  2. FOLIC ACID. [Concomitant]
     Active Substance: FOLIC ACID
     Indication: CYTOPENIA
     Dosage: 1 MILLIGRAM
     Route: 048
     Dates: start: 201102, end: 201106

REACTIONS (3)
  - Bronchopulmonary aspergillosis [Fatal]
  - Acute myeloid leukaemia [Not Recovered/Not Resolved]
  - Septic shock [Fatal]

NARRATIVE: CASE EVENT DATE: 201309
